FAERS Safety Report 20889900 (Version 6)
Quarter: 2022Q3

REPORT INFORMATION
  Report Type: Report from Study
  Country: US (occurrence: US)
  Receive Date: 20220530
  Receipt Date: 20220923
  Transmission Date: 20221026
  Serious: Yes (Other)
  Sender: FDA-Public Use
  Company Number: US-APELLIS PHARMACEUTICALS-APL-2022-001224

PATIENT
  Age: 45 Year
  Sex: Male

DRUGS (6)
  1. PEGCETACOPLAN [Suspect]
     Active Substance: PEGCETACOPLAN
     Indication: Paroxysmal nocturnal haemoglobinuria
     Dosage: 1080 MILLIGRAM, TWICE WEEKLY
     Route: 058
     Dates: start: 20220422
  2. PEGCETACOPLAN [Suspect]
     Active Substance: PEGCETACOPLAN
     Dosage: 1080 MILLIGRAM, TWICE WEEKLY
     Route: 058
     Dates: start: 20220426
  3. PEGCETACOPLAN [Suspect]
     Active Substance: PEGCETACOPLAN
     Dosage: 1080 MILLIGRAM, TWICE WEEKLY
     Route: 058
     Dates: start: 20220420
  4. FOLIC ACID [Concomitant]
     Active Substance: FOLIC ACID
     Indication: Product used for unknown indication
  5. ACETAMINOPHEN\ASCORBIC ACID [Concomitant]
     Active Substance: ACETAMINOPHEN\ASCORBIC ACID
     Indication: Product used for unknown indication
  6. IBUPROFEN [Concomitant]
     Active Substance: IBUPROFEN
     Indication: Pain

REACTIONS (16)
  - Sensitive skin [Not Recovered/Not Resolved]
  - Neuropathy peripheral [Recovered/Resolved]
  - Joint swelling [Not Recovered/Not Resolved]
  - Joint swelling [Recovered/Resolved]
  - Arthralgia [Not Recovered/Not Resolved]
  - Dizziness [Not Recovered/Not Resolved]
  - Feeling abnormal [Not Recovered/Not Resolved]
  - Sleep disorder due to general medical condition, hypersomnia type [Not Recovered/Not Resolved]
  - Tenderness [Not Recovered/Not Resolved]
  - Infusion site pain [Recovering/Resolving]
  - Nasopharyngitis [Recovering/Resolving]
  - Arthritis [Recovered/Resolved]
  - Tendonitis [Recovered/Resolved]
  - Condition aggravated [Recovered/Resolved]
  - Erythema [Recovered/Resolved]
  - Tendon pain [Recovered/Resolved]

NARRATIVE: CASE EVENT DATE: 20220507
